FAERS Safety Report 6486907-2 (Version None)
Quarter: 2009Q4

REPORT INFORMATION
  Report Type: 
  Country: None (occurrence: None)
  Receive Date: 20091210
  Receipt Date: 20091130
  Transmission Date: 20100525
  Serious: Yes (Other)
  Sender: FDA-Public Use
  Company Number: US-AMGEN-QUU377322

PATIENT
  Sex: Male

DRUGS (2)
  1. ENBREL [Suspect]
     Indication: PSORIASIS
     Route: 058
     Dates: start: 20090514
  2. PERCOCET [Concomitant]

REACTIONS (11)
  - ADVERSE DRUG REACTION [None]
  - ANXIETY [None]
  - DYSARTHRIA [None]
  - FEELING COLD [None]
  - GAIT DISTURBANCE [None]
  - INJECTION SITE INDURATION [None]
  - INJECTION SITE PAIN [None]
  - INSOMNIA [None]
  - MALAISE [None]
  - PAIN [None]
  - VISION BLURRED [None]
